FAERS Safety Report 11443600 (Version 2)
Quarter: 2015Q3

REPORT INFORMATION
  Report Type: Spontaneous
  Country: US (occurrence: None)
  Receive Date: 20150901
  Receipt Date: 20150916
  Transmission Date: 20151125
  Serious: Yes (Hospitalization, Other)
  Sender: FDA-Public Use
  Company Number: ADR-2015-01306

PATIENT
  Age: 38 Year
  Sex: Female

DRUGS (1)
  1. LIORESAL [Suspect]
     Active Substance: BACLOFEN
     Dosage: 794.8 MCG/DAY

REACTIONS (13)
  - Muscle spasms [None]
  - Musculoskeletal stiffness [None]
  - Hyperhidrosis [None]
  - Adverse drug reaction [None]
  - Skin atrophy [None]
  - Laceration [None]
  - Pyrexia [None]
  - Muscle rigidity [None]
  - Muscle spasticity [None]
  - Pain [None]
  - Drug withdrawal syndrome [None]
  - Medical device site infection [None]
  - Tremor [None]
